FAERS Safety Report 10021230 (Version 1)
Quarter: 2014Q1

REPORT INFORMATION
  Report Type: Spontaneous
  Country: US (occurrence: None)
  Receive Date: 20140318
  Receipt Date: 20140318
  Transmission Date: 20141002
  Serious: Yes (Hospitalization)
  Sender: FDA-Public Use
  Company Number: None

PATIENT
  Age: 42 Year
  Sex: Male

DRUGS (1)
  1. ULTRAM [Suspect]
     Indication: PAIN
     Dosage: 1-2  QID  ORAL
     Route: 048

REACTIONS (1)
  - Convulsion [None]
